FAERS Safety Report 6974613-7 (Version None)
Quarter: 2010Q3

REPORT INFORMATION
  Report Type: 
  Country: None (occurrence: None)
  Receive Date: 20100909
  Receipt Date: 20081201
  Transmission Date: 20110219
  Serious: No
  Sender: FDA-Public Use
  Company Number: US-WYE-H07079108

PATIENT
  Sex: Female
  Weight: 65.83 kg

DRUGS (3)
  1. PRISTIQ [Suspect]
     Indication: PANIC ATTACK
     Route: 048
     Dates: start: 20081110
  2. AMBIEN [Suspect]
     Indication: INSOMNIA
     Dates: start: 20080701
  3. XANAX [Concomitant]

REACTIONS (4)
  - ANXIETY [None]
  - CONSTIPATION [None]
  - FEELING ABNORMAL [None]
  - INSOMNIA [None]
